FAERS Safety Report 26123648 (Version 1)
Quarter: 2025Q4

REPORT INFORMATION
  Report Type: Spontaneous
  Country: CH (occurrence: CH)
  Receive Date: 20251205
  Receipt Date: 20251205
  Transmission Date: 20260118
  Serious: Yes (Other)
  Sender: AMGEN
  Company Number: CH-AMGEN-CHESP2025237415

PATIENT

DRUGS (1)
  1. PROLIA [Suspect]
     Active Substance: DENOSUMAB
     Indication: Product used for unknown indication
     Dosage: UNK
     Route: 065

REACTIONS (8)
  - Spinal fracture [Unknown]
  - Osteoporotic fracture [Unknown]
  - Femoral neck fracture [Unknown]
  - Myocardial ischaemia [Unknown]
  - Cerebrovascular accident [Unknown]
  - Injection site reaction [Unknown]
  - Myalgia [Unknown]
  - Arthralgia [Unknown]
